FAERS Safety Report 9932814 (Version 2)
Quarter: 2014Q1

REPORT INFORMATION
  Report Type: Spontaneous
  Country: US (occurrence: US)
  Receive Date: 20140228
  Receipt Date: 20140228
  Transmission Date: 20141002
  Serious: No
  Sender: FDA-Public Use
  Company Number: US-ABBVIE-12P-163-0962600-00

PATIENT
  Sex: Male
  Weight: 87.17 kg

DRUGS (2)
  1. ANDROGEL 1% [Suspect]
     Indication: BLOOD TESTOSTERONE DECREASED
     Route: 061
     Dates: start: 2010, end: 2012
  2. ANDROGEL [Suspect]
     Indication: BLOOD TESTOSTERONE DECREASED
     Dosage: 5 DAYS A WEEK, DAILY 40.5MG
     Route: 061
     Dates: start: 2012

REACTIONS (4)
  - Application site pruritus [Recovered/Resolved]
  - Pruritus [Not Recovered/Not Resolved]
  - Blood testosterone decreased [Unknown]
  - Incorrect dose administered [Unknown]
